FAERS Safety Report 16210259 (Version 2)
Quarter: 2019Q4

REPORT INFORMATION
  Report Type: Spontaneous
  Country: US (occurrence: US)
  Receive Date: 20190418
  Receipt Date: 20191113
  Transmission Date: 20200122
  Serious: Yes (Other)
  Sender: FDA-Public Use
  Company Number: US-JNJFOC-20190408004

PATIENT
  Age: 42 Year
  Sex: Female

DRUGS (6)
  1. XARELTO [Suspect]
     Active Substance: RIVAROXABAN
     Route: 048
     Dates: end: 201809
  2. XARELTO [Suspect]
     Active Substance: RIVAROXABAN
     Indication: THROMBOSIS PROPHYLAXIS
     Route: 048
     Dates: start: 20170504, end: 20180126
  3. XARELTO [Suspect]
     Active Substance: RIVAROXABAN
     Dosage: 15 MG TWICE DAILY THEN 20 MG ONCE DAILY
     Route: 048
     Dates: start: 20180716, end: 20180821
  4. XARELTO [Suspect]
     Active Substance: RIVAROXABAN
     Dosage: 15 MG TWICE DAILY THEN 20 MG ONCE DAILY
     Route: 048
     Dates: start: 20180612, end: 20180716
  5. ASPIRIN                            /00002701/ [Suspect]
     Active Substance: ASPIRIN
     Indication: PRODUCT USED FOR UNKNOWN INDICATION
     Route: 065
  6. XARELTO [Suspect]
     Active Substance: RIVAROXABAN
     Indication: PULMONARY EMBOLISM
     Route: 048
     Dates: start: 201603

REACTIONS (2)
  - Melaena [Unknown]
  - Gastrointestinal haemorrhage [Unknown]

NARRATIVE: CASE EVENT DATE: 20180821
